FAERS Safety Report 7335700-7 (Version None)
Quarter: 2011Q1

REPORT INFORMATION
  Report Type: 
  Country: None (occurrence: None)
  Receive Date: 20110307
  Receipt Date: 20110223
  Transmission Date: 20110831
  Serious: Yes (Hospitalization)
  Sender: FDA-Public Use
  Company Number: A0916441A

PATIENT
  Sex: Female

DRUGS (1)
  1. AVANDIA [Suspect]

REACTIONS (1)
  - MYOCARDIAL INFARCTION [None]
